FAERS Safety Report 4974365-6 (Version None)
Quarter: 2006Q2

REPORT INFORMATION
  Report Type: 
  Country: None (occurrence: None)
  Receive Date: 20060410
  Receipt Date: 20060327
  Transmission Date: 20061013
  Serious: Yes (Hospitalization, Other)
  Sender: FDA-Public Use
  Company Number: 2006042522

PATIENT
  Sex: Male

DRUGS (6)
  1. CELEBREX [Suspect]
     Indication: ARTHRITIS
     Dosage: 400 MG (200 MEQ, 2 IN 1 D)
     Dates: start: 20050101
  2. MOTRIN [Suspect]
     Indication: ARTHRITIS
     Dosage: (600 MG)
  3. VIAGRA [Suspect]
     Indication: MALE ORGASMIC DISORDER
     Dates: start: 20050101
  4. PERCOCET [Suspect]
     Indication: ILL-DEFINED DISORDER
  5. VALIUM [Concomitant]
  6. BACLOFEN [Concomitant]

REACTIONS (11)
  - ARTHRITIS [None]
  - CONSTIPATION [None]
  - DRUG INEFFECTIVE [None]
  - FEELING ABNORMAL [None]
  - INTESTINAL PERFORATION [None]
  - MALE ORGASMIC DISORDER [None]
  - PAIN [None]
  - PENILE VASCULAR DISORDER [None]
  - PNEUMONIA [None]
  - PSYCHOMOTOR HYPERACTIVITY [None]
  - WEIGHT DECREASED [None]
